FAERS Safety Report 8558805-1 (Version None)
Quarter: 2012Q3

REPORT INFORMATION
  Report Type: 
  Country: None (occurrence: None)
  Receive Date: 20120801
  Receipt Date: 20120720
  Transmission Date: 20120928
  Serious: Yes (Hospitalization, Other)
  Sender: FDA-Public Use
  Company Number: US-009507513-1109USA01760

PATIENT

DRUGS (8)
  1. FOSAMAX [Suspect]
  2. FOSAMAX [Suspect]
     Route: 048
     Dates: start: 20081015, end: 20091214
  3. FOSAMAX [Suspect]
  4. FOSAMAX [Suspect]
     Indication: OSTEOPENIA
     Dosage: 10 MG, UNK
     Route: 048
     Dates: start: 19960328, end: 20010102
  5. FOSAMAX [Suspect]
     Dosage: 70 MG, QW
     Route: 048
     Dates: start: 20080303, end: 20100101
  6. MK-9278 [Concomitant]
     Dosage: UNK, QD
     Dates: start: 19900101
  7. LIPITOR [Concomitant]
     Indication: HYPERCHOLESTEROLAEMIA
     Dosage: 40 MG, QD
  8. FOSAMAX [Suspect]
     Indication: OSTEOPOROSIS
     Dosage: 70 MG, QW
     Route: 048
     Dates: start: 20010215, end: 20100101

REACTIONS (19)
  - OEDEMA PERIPHERAL [None]
  - LIMB ASYMMETRY [None]
  - ANIMAL BITE [None]
  - INCISION SITE OEDEMA [None]
  - LOW TURNOVER OSTEOPATHY [None]
  - WOUND [None]
  - JOINT STIFFNESS [None]
  - HAEMORRHAGIC ANAEMIA [None]
  - HYPERTENSION [None]
  - HYPOACUSIS [None]
  - FEMUR FRACTURE [None]
  - ARTHROPATHY [None]
  - FALL [None]
  - VASCULAR CALCIFICATION [None]
  - ARTHRALGIA [None]
  - INCISION SITE HAEMATOMA [None]
  - SPINAL OSTEOARTHRITIS [None]
  - OSTEOARTHRITIS [None]
  - INCISION SITE PAIN [None]
